FAERS Safety Report 15741867 (Version 1)
Quarter: 2018Q4

REPORT INFORMATION
  Report Type: Report from Study
  Country: US (occurrence: US)
  Receive Date: 20181219
  Receipt Date: 20181219
  Transmission Date: 20190205
  Serious: Yes (Other)
  Sender: FDA-Public Use
  Company Number: US-BAYER-2018-186351

PATIENT
  Age: 67 Year
  Sex: Male

DRUGS (38)
  1. DEXAMETHASONE. [Concomitant]
     Active Substance: DEXAMETHASONE
     Dosage: 4 MG
  2. FLAXSEED [Concomitant]
     Active Substance: FLAX SEED
  3. LATANOPROST. [Concomitant]
     Active Substance: LATANOPROST
  4. LISINOPRIL. [Concomitant]
     Active Substance: LISINOPRIL
  5. NALOXONE HYDROCHLORIDE. [Concomitant]
     Active Substance: NALOXONE HYDROCHLORIDE
  6. HYDROCODONE [Concomitant]
     Active Substance: HYDROCODONE
  7. LISINOPRIL. [Concomitant]
     Active Substance: LISINOPRIL
  8. NALOXONE HYDROCHLORIDE. [Concomitant]
     Active Substance: NALOXONE HYDROCHLORIDE
  9. ONDANSETRON HYDROCHLORIDE. [Concomitant]
     Active Substance: ONDANSETRON HYDROCHLORIDE
  10. ROBITUSSIN CHESTY COUGH [Concomitant]
     Active Substance: GUAIFENESIN
  11. ASPIRIN [ACETYLSALICYLIC ACID] [Concomitant]
     Active Substance: ASPIRIN
  12. CHLORTALIDONE [Concomitant]
     Active Substance: CHLORTHALIDONE
  13. FLAXSEED [Concomitant]
     Active Substance: FLAX SEED
  14. LANTUS [Concomitant]
     Active Substance: INSULIN GLARGINE
  15. MUGARD [CARBOMER] [Concomitant]
  16. GLIMEPIRIDE. [Concomitant]
     Active Substance: GLIMEPIRIDE
  17. HUMALOG [Concomitant]
     Active Substance: INSULIN LISPRO
  18. NITROGLYCERIN. [Concomitant]
     Active Substance: NITROGLYCERIN
  19. STIVARGA [Suspect]
     Active Substance: REGORAFENIB
     Indication: APPENDIX CANCER
     Dosage: 160 MG, QD (FOR 21 DAYS ON, 7 OFF)
     Route: 048
     Dates: start: 20181002
  20. DEXAMETHASONE. [Concomitant]
     Active Substance: DEXAMETHASONE
  21. LOPERAMIDE [Concomitant]
     Active Substance: LOPERAMIDE
  22. MAGNESIUM OXIDE. [Concomitant]
     Active Substance: MAGNESIUM OXIDE
  23. METOPROLOL. [Concomitant]
     Active Substance: METOPROLOL
     Dosage: 50 MG
  24. CHLORTALIDONE [Concomitant]
     Active Substance: CHLORTHALIDONE
  25. GLIMEPIRIDE. [Concomitant]
     Active Substance: GLIMEPIRIDE
  26. POTASSIUM CHLORIDE. [Concomitant]
     Active Substance: POTASSIUM CHLORIDE
  27. TRIAMCINOLONE ACETONIDE. [Concomitant]
     Active Substance: TRIAMCINOLONE ACETONIDE
  28. TRIAMCINOLONE ACETONIDE. [Concomitant]
     Active Substance: TRIAMCINOLONE ACETONIDE
  29. ASPIRIN [ACETYLSALICYLIC ACID] [Concomitant]
     Active Substance: ASPIRIN
  30. LIDOCAINE. [Concomitant]
     Active Substance: LIDOCAINE
     Dosage: 2.5-2.5%
  31. METOPROLOL TARTRATE. [Concomitant]
     Active Substance: METOPROLOL TARTRATE
  32. OMEPRAZOLE. [Concomitant]
     Active Substance: OMEPRAZOLE
  33. ONDANSETRON HYDROCHLORIDE. [Concomitant]
     Active Substance: ONDANSETRON HYDROCHLORIDE
  34. LATANOPROST. [Concomitant]
     Active Substance: LATANOPROST
  35. MAGNESIUM OXIDE. [Concomitant]
     Active Substance: MAGNESIUM OXIDE
  36. METOPROLOL TARTRATE. [Concomitant]
     Active Substance: METOPROLOL TARTRATE
  37. OMEPRAZOLE. [Concomitant]
     Active Substance: OMEPRAZOLE
  38. POTASSIUM CHLORIDE. [Concomitant]
     Active Substance: POTASSIUM CHLORIDE

REACTIONS (13)
  - Neuropathy peripheral [Not Recovered/Not Resolved]
  - Noninfective gingivitis [Recovering/Resolving]
  - Tongue ulceration [Recovering/Resolving]
  - Cheilitis [Recovering/Resolving]
  - Palmoplantar keratoderma [Recovering/Resolving]
  - Pruritus [Recovering/Resolving]
  - Hyperkeratosis [Not Recovered/Not Resolved]
  - Palmar erythema [Recovering/Resolving]
  - Pain in extremity [Not Recovered/Not Resolved]
  - Paraesthesia [Not Recovered/Not Resolved]
  - Weight decreased [Recovering/Resolving]
  - Oropharyngeal pain [Recovering/Resolving]
  - Fatigue [Recovering/Resolving]

NARRATIVE: CASE EVENT DATE: 20181003
